FAERS Safety Report 17045497 (Version 1)
Quarter: 2019Q4

REPORT INFORMATION
  Report Type: Other
  Country: US (occurrence: US)
  Receive Date: 20191118
  Receipt Date: 20191118
  Transmission Date: 20200122
  Serious: No
  Sender: FDA-Public Use
  Company Number: US-LEADIANT BIOSCIENCES INC-2018STPI000695

PATIENT
  Sex: Female

DRUGS (11)
  1. CYSTARAN [Suspect]
     Active Substance: CYSTEAMINE HYDROCHLORIDE
     Indication: CORNEAL DEPOSITS
     Dosage: 1 GTT, QH
     Route: 047
     Dates: start: 20140813
  2. POLYETHYLENE GLYCOL [Concomitant]
     Active Substance: POLYETHYLENE GLYCOLS
  3. PREDNISONE. [Concomitant]
     Active Substance: PREDNISONE
  4. PROCYSBI [Concomitant]
     Active Substance: CYSTEAMINE BITARTRATE
  5. LIALDA [Concomitant]
     Active Substance: MESALAMINE
  6. POTASSIUM SULFATE [Concomitant]
     Active Substance: POTASSIUM SULFATE
  7. ENVARSUS XR [Concomitant]
     Active Substance: TACROLIMUS
  8. MYFORTIC [Concomitant]
     Active Substance: MYCOPHENOLATE SODIUM
  9. VITAMIN D                          /00107901/ [Concomitant]
     Active Substance: ERGOCALCIFEROL
  10. LORATADINE. [Concomitant]
     Active Substance: LORATADINE
  11. MAGNESIUM [Concomitant]
     Active Substance: MAGNESIUM

REACTIONS (2)
  - Eye pruritus [Not Recovered/Not Resolved]
  - Photophobia [Not Recovered/Not Resolved]
